FAERS Safety Report 6375546-X (Version None)
Quarter: 2009Q3

REPORT INFORMATION
  Report Type: 
  Country: None (occurrence: None)
  Receive Date: 20090917
  Receipt Date: 20090917
  Transmission Date: 20100115
  Serious: No
  Sender: FDA-Public Use
  Company Number: None

PATIENT
  Age: 40 Year
  Sex: Male

DRUGS (1)
  1. TORADOL [Suspect]
     Dosage: IV BOLUS
     Route: 040

REACTIONS (4)
  - BLADDER SPASM [None]
  - CHEST PAIN [None]
  - DYSPNOEA [None]
  - NEPHROLITHIASIS [None]
